FAERS Safety Report 7385849-8 (Version None)
Quarter: 2011Q1

REPORT INFORMATION
  Report Type: 
  Country: None (occurrence: None)
  Receive Date: 20110331
  Receipt Date: 20110329
  Transmission Date: 20110831
  Serious: Yes (Other)
  Sender: FDA-Public Use
  Company Number: US-PFIZER INC-2008040442

PATIENT
  Sex: Female

DRUGS (5)
  1. LASIX [Concomitant]
  2. GINKGO BILOBA EXTRACT [Concomitant]
  3. LYRICA [Suspect]
     Indication: FIBROMYALGIA
     Dosage: 75 MG, 1X/DAY
     Dates: start: 20080101
  4. POTASSIUM [Concomitant]
  5. ZAROXOLYN [Concomitant]

REACTIONS (5)
  - FEELING ABNORMAL [None]
  - TINNITUS [None]
  - MOVEMENT DISORDER [None]
  - VISION BLURRED [None]
  - PARAESTHESIA [None]
